FAERS Safety Report 6656418-X (Version None)
Quarter: 2010Q1

REPORT INFORMATION
  Report Type: 
  Country: None (occurrence: None)
  Receive Date: 20100324
  Receipt Date: 20100309
  Transmission Date: 20100710
  Serious: Yes (Other)
  Sender: FDA-Public Use
  Company Number: B0641393A

PATIENT
  Age: 76 Year
  Sex: Male

DRUGS (2)
  1. PAROXETINE HYDROCHLORIDE [Suspect]
     Indication: DEPRESSION
  2. MILNACIPRAN (FORMULATION UNKNOWN) (MILNACIPRAN) [Suspect]
     Indication: FIBROMYALGIA

REACTIONS (5)
  - BLOOD PRESSURE INCREASED [None]
  - FIBROMYALGIA [None]
  - MYDRIASIS [None]
  - SEROTONIN SYNDROME [None]
  - UNRESPONSIVE TO STIMULI [None]
